FAERS Safety Report 20822630 (Version 2)
Quarter: 2022Q2

REPORT INFORMATION
  Report Type: Spontaneous
  Country: US (occurrence: US)
  Receive Date: 20220512
  Receipt Date: 20220525
  Transmission Date: 20220721
  Serious: Yes (Hospitalization, Other)
  Sender: FDA-Public Use
  Company Number: US-PFIZER INC-202200668315

PATIENT
  Age: 70 Year
  Sex: Female
  Weight: 87.09 kg

DRUGS (1)
  1. QUINAPRIL [Suspect]
     Active Substance: QUINAPRIL
     Dosage: UNK

REACTIONS (1)
  - Cerebrovascular accident [Unknown]

NARRATIVE: CASE EVENT DATE: 20160101
